FAERS Safety Report 9402545 (Version 1)
Quarter: 2013Q3

REPORT INFORMATION
  Report Type: Spontaneous
  Country: DK (occurrence: FR)
  Receive Date: 20130716
  Receipt Date: 20130716
  Transmission Date: 20140515
  Serious: Yes (Hospitalization)
  Sender: FDA-Public Use
  Company Number: FR-FRI-1000046677

PATIENT
  Age: 78 Year
  Sex: Female

DRUGS (11)
  1. ESCITALOPRAM [Suspect]
     Dosage: 1 DF
     Dates: start: 20130515, end: 20130524
  2. KARDEGIC [Concomitant]
     Dosage: 160 MG
  3. XANAX [Concomitant]
  4. ENDOTELON [Concomitant]
  5. TANAKAN [Concomitant]
  6. MIANSERIN [Concomitant]
     Dosage: 1 DF
  7. OMEPRAZOLE [Concomitant]
  8. AZANTAC [Concomitant]
     Dosage: 150 MG
  9. SIMVASTATIN [Concomitant]
     Dosage: 20 MG
  10. TAREG [Concomitant]
     Dosage: 1 DF
  11. COTAREG [Concomitant]
     Dosage: 1 DF

REACTIONS (3)
  - Hyponatraemia [Recovered/Resolved]
  - Confusional state [Recovering/Resolving]
  - Psychomotor hyperactivity [Recovering/Resolving]
